FAERS Safety Report 9765924 (Version 1)
Quarter: 2013Q4

REPORT INFORMATION
  Report Type: Spontaneous
  Country: US (occurrence: US)
  Receive Date: 20131217
  Receipt Date: 20131217
  Transmission Date: 20140711
  Serious: No
  Sender: FDA-Public Use
  Company Number: US-BIOGENIDEC-2013BI112013

PATIENT
  Sex: Male

DRUGS (9)
  1. TECFIDERA [Suspect]
     Indication: PRODUCT USED FOR UNKNOWN INDICATION
     Dates: start: 2013, end: 20131025
  2. AMPYRA [Concomitant]
  3. VITAMIN D [Concomitant]
  4. HYDRALAZINE HCL [Concomitant]
  5. CARVEDIOL [Concomitant]
  6. OXYCODONE HCL [Concomitant]
  7. PLAVIX [Concomitant]
  8. BACLOFEN [Concomitant]
  9. NEURONTIN [Concomitant]

REACTIONS (4)
  - Muscular weakness [Unknown]
  - Hyperhidrosis [Unknown]
  - Hyperaesthesia [Unknown]
  - Flushing [Unknown]
